FAERS Safety Report 26174528 (Version 1)
Quarter: 2025Q4

REPORT INFORMATION
  Report Type: Spontaneous
  Country: US (occurrence: None)
  Receive Date: 20251217
  Receipt Date: 20251217
  Transmission Date: 20260118
  Serious: Yes (Other)
  Sender: FDA-CTU
  Company Number: None

PATIENT
  Age: 48 Year
  Sex: Male
  Weight: 90 kg

DRUGS (1)
  1. TREMFYA [Suspect]
     Active Substance: GUSELKUMAB
     Dosage: OTHER FREQUENCY : EVERY 4 WEEKS;
     Route: 058
     Dates: start: 20250923, end: 20251209

REACTIONS (9)
  - Abdominal pain upper [None]
  - Myalgia [None]
  - Arthralgia [None]
  - Visual impairment [None]
  - Sinusitis [None]
  - Dyspnoea [None]
  - Chest discomfort [None]
  - Presyncope [None]
  - Therapy cessation [None]

NARRATIVE: CASE EVENT DATE: 20251209
